FAERS Safety Report 8826096 (Version 1)
Quarter: 2012Q4

REPORT INFORMATION
  Report Type: 
  Country: BR (occurrence: BR)
  Receive Date: 20121008
  Receipt Date: 20121008
  Transmission Date: 20130627
  Serious: Yes (Other)
  Sender: FDA-Public Use
  Company Number: BR-JNJFOC-20121000980

PATIENT
  Age: 30 Year
  Sex: Female
  Weight: 75 kg

DRUGS (1)
  1. MICRONOR [Suspect]
     Indication: CONTRACEPTION
     Route: 048
     Dates: start: 2008

REACTIONS (7)
  - Panic disorder [Not Recovered/Not Resolved]
  - Amenorrhoea [Recovered/Resolved]
  - Blood pressure increased [Not Recovered/Not Resolved]
  - Nervousness [Unknown]
  - Weight increased [Not Recovered/Not Resolved]
  - Inappropriate schedule of drug administration [Unknown]
  - Therapeutic response unexpected [Unknown]
